FAERS Safety Report 16951733 (Version 1)
Quarter: 2019Q4

REPORT INFORMATION
  Report Type: Spontaneous
  Country: US (occurrence: US)
  Receive Date: 20191023
  Receipt Date: 20191023
  Transmission Date: 20200122
  Serious: Yes (Hospitalization)
  Sender: FDA-Public Use
  Company Number: US-BAUSCH-BL-2019-057848

PATIENT
  Age: 52 Year
  Sex: Female

DRUGS (3)
  1. OXYCODONE [Concomitant]
     Active Substance: OXYCODONE
     Indication: FIBROMYALGIA
     Dosage: FOR THE LAST 3 YEARS
  2. GABAPENTIN. [Concomitant]
     Active Substance: GABAPENTIN
     Indication: NEURALGIA
     Dosage: FOR THE LAST 3 YEARS
  3. DOXYCYLINE [Suspect]
     Active Substance: DOXYCYCLINE
     Indication: ACNE
     Route: 065

REACTIONS (1)
  - Pancreatitis acute [Recovering/Resolving]
